FAERS Safety Report 5836452-X (Version None)
Quarter: 2008Q3

REPORT INFORMATION
  Report Type: 
  Country: None (occurrence: None)
  Receive Date: 20080806
  Receipt Date: 20080806
  Transmission Date: 20090109
  Serious: Yes (Hospitalization)
  Sender: FDA-Public Use
  Company Number: None

PATIENT
  Sex: Female

DRUGS (1)
  1. PURITAN'S PRIDE HERB LAXATIVE TABS 3 [Suspect]
     Dosage: FIVE TABLETS DAILY, ORAL
     Route: 048
     Dates: start: 20000501, end: 20080605

REACTIONS (4)
  - GASTRIC DISORDER [None]
  - GASTROINTESTINAL HAEMORRHAGE [None]
  - HAEMORRHOIDS [None]
  - POST PROCEDURAL COMPLICATION [None]
